FAERS Safety Report 10791165 (Version 1)
Quarter: 2015Q1

REPORT INFORMATION
  Report Type: Spontaneous
  Country: NL (occurrence: NL)
  Receive Date: 20150212
  Receipt Date: 20150212
  Transmission Date: 20150721
  Serious: Yes (Hospitalization)
  Sender: FDA-Public Use
  Company Number: NL-MYLANLABS-2015M1004135

PATIENT

DRUGS (2)
  1. DICLOFENAC [Suspect]
     Active Substance: DICLOFENAC
     Indication: RENAL COLIC
     Route: 030
  2. DICLOFENAC [Suspect]
     Active Substance: DICLOFENAC
     Indication: OFF LABEL USE

REACTIONS (1)
  - Embolia cutis medicamentosa [Unknown]
